FAERS Safety Report 18969006 (Version 6)
Quarter: 2022Q4

REPORT INFORMATION
  Report Type: Spontaneous
  Country: CA (occurrence: CA)
  Receive Date: 20210304
  Receipt Date: 20221122
  Transmission Date: 20230113
  Serious: Yes (Other)
  Sender: FDA-Public Use
  Company Number: CA-PFIZER INC-2020338957

PATIENT
  Age: 61 Year
  Sex: Male
  Weight: 101 kg

DRUGS (10)
  1. RUXIENCE [Suspect]
     Active Substance: RITUXIMAB-PVVR
     Indication: Granulomatosis with polyangiitis
     Dosage: 500 MG, WEEKLY (FOR 4 WEEKS)
     Route: 042
  2. RUXIENCE [Suspect]
     Active Substance: RITUXIMAB-PVVR
     Indication: Microscopic polyangiitis
     Dosage: 799.5 MG, WEEKLY (FOR 4 WEEKS)
     Route: 042
     Dates: start: 20201021
  3. RUXIENCE [Suspect]
     Active Substance: RITUXIMAB-PVVR
     Dosage: 799.5 MG, WEEKLY (FOR 4 WEEKS)
     Route: 042
     Dates: start: 20201021, end: 20201111
  4. RUXIENCE [Suspect]
     Active Substance: RITUXIMAB-PVVR
     Dosage: 799.5 MG, WEEKLY (FOR 4 WEEKS)
     Route: 042
     Dates: start: 20201104
  5. RUXIENCE [Suspect]
     Active Substance: RITUXIMAB-PVVR
     Dosage: 799.5 MG, WEEKLY (FOR 4 WEEKS)
     Route: 042
     Dates: start: 20201104
  6. RUXIENCE [Suspect]
     Active Substance: RITUXIMAB-PVVR
     Dosage: 799.5 MG, WEEKLY (FOR 4 WEEKS)
     Route: 042
     Dates: start: 20201111
  7. RUXIENCE [Suspect]
     Active Substance: RITUXIMAB-PVVR
     Dosage: 799.5 MG, WEEKLY (FOR 4 WEEKS)
     Route: 042
     Dates: start: 20210415
  8. RUXIENCE [Suspect]
     Active Substance: RITUXIMAB-PVVR
     Dosage: 500 MG, SINGLE DOSE
     Route: 042
     Dates: start: 20211110, end: 20211110
  9. RUXIENCE [Suspect]
     Active Substance: RITUXIMAB-PVVR
     Dosage: 500 MG, SINGLE DOSE
     Route: 041
     Dates: start: 20220511, end: 20220511
  10. RUXIENCE [Suspect]
     Active Substance: RITUXIMAB-PVVR
     Dosage: 500 MG, SINGLE DOSE
     Route: 041
     Dates: start: 20221116, end: 20221116

REACTIONS (7)
  - Tooth disorder [Unknown]
  - Hypoacusis [Unknown]
  - Blood pressure fluctuation [Unknown]
  - Cyst [Unknown]
  - Off label use [Unknown]
  - Intentional product use issue [Unknown]
  - Off label use [Unknown]

NARRATIVE: CASE EVENT DATE: 20201021
